FAERS Safety Report 16961783 (Version 1)
Quarter: 2019Q4

REPORT INFORMATION
  Report Type: Spontaneous
  Country: FR (occurrence: FR)
  Receive Date: 20191025
  Receipt Date: 20191025
  Transmission Date: 20200122
  Serious: Yes (Hospitalization, Other)
  Sender: FDA-Public Use
  Company Number: FR-BRISTOL-MYERS SQUIBB COMPANY-BMS-2019-100553

PATIENT
  Age: 65 Year
  Sex: Female
  Weight: 52 kg

DRUGS (2)
  1. LAROXYL [Suspect]
     Active Substance: AMITRIPTYLINE HYDROCHLORIDE
     Indication: PARAESTHESIA
     Dosage: 5 DROP (1/12 MILLILITRE), QD
     Route: 048
     Dates: start: 201907
  2. OPDIVO [Suspect]
     Active Substance: NIVOLUMAB
     Indication: MALIGNANT MELANOMA
     Dosage: 3 MILLIGRAM/KILOGRAM, Q2WK
     Route: 042
     Dates: start: 20190722, end: 20190821

REACTIONS (2)
  - Lichenoid keratosis [Recovering/Resolving]
  - Granulomatous liver disease [Recovering/Resolving]

NARRATIVE: CASE EVENT DATE: 20190722
